FAERS Safety Report 19841412 (Version 3)
Quarter: 2022Q1

REPORT INFORMATION
  Report Type: Spontaneous
  Country: US (occurrence: US)
  Receive Date: 20210916
  Receipt Date: 20220128
  Transmission Date: 20220423
  Serious: No
  Sender: FDA-Public Use
  Company Number: LUS21-00462

PATIENT
  Sex: Male

DRUGS (2)
  1. PHENELZINE [Suspect]
     Active Substance: PHENELZINE
     Indication: Depressed mood
     Dosage: 15 MILLIGRAM
     Route: 048
     Dates: start: 20210501
  2. XANAX [Concomitant]
     Active Substance: ALPRAZOLAM
     Indication: Product used for unknown indication
     Dosage: 0.5 MILLIGRAM, PRN
     Route: 065

REACTIONS (9)
  - Labelled drug-food interaction issue [Not Recovered/Not Resolved]
  - Affective disorder [Unknown]
  - Asthenia [Unknown]
  - Hypersomnia [Unknown]
  - Headache [Unknown]
  - Nightmare [Unknown]
  - Drug ineffective [Unknown]
  - Product label issue [Unknown]
  - Loss of dreaming [Not Recovered/Not Resolved]
